FAERS Safety Report 5541564-4 (Version None)
Quarter: 2007Q4

REPORT INFORMATION
  Report Type: 
  Country: None (occurrence: None)
  Receive Date: 20071210
  Receipt Date: 20071203
  Transmission Date: 20080405
  Serious: Yes (Other)
  Sender: FDA-Public Use
  Company Number: PHEH2006US10419

PATIENT
  Age: 58 Year
  Sex: Female
  Weight: 58.049 kg

DRUGS (6)
  1. AREDIA [Suspect]
     Indication: OSTEOPOROSIS
     Dates: start: 20020101, end: 20051007
  2. CELEBREX [Concomitant]
  3. PRILOSEC [Concomitant]
  4. PREVACID [Concomitant]
  5. HORMONES NOS [Concomitant]
  6. CALCIUM [Concomitant]

REACTIONS (12)
  - BONE GRAFT [None]
  - ENDODONTIC PROCEDURE [None]
  - ERYTHEMA [None]
  - GINGIVAL BLEEDING [None]
  - GINGIVAL PAIN [None]
  - GINGIVITIS [None]
  - OEDEMA PERIPHERAL [None]
  - OSTEONECROSIS [None]
  - SURGERY [None]
  - TENDERNESS [None]
  - TOOTH DISORDER [None]
  - TOOTH INFECTION [None]
